FAERS Safety Report 15114378 (Version 16)
Quarter: 2020Q3

REPORT INFORMATION
  Report Type: Other
  Country: DE (occurrence: DE)
  Receive Date: 20180706
  Receipt Date: 20200916
  Transmission Date: 20201102
  Serious: Yes (Hospitalization, Other)
  Sender: FDA-Public Use
  Company Number: DE-ROCHE-2107689

PATIENT
  Age: 46 Year
  Sex: Female

DRUGS (5)
  1. VESIKUR [Concomitant]
     Active Substance: SOLIFENACIN SUCCINATE
  2. LYRICA [Concomitant]
     Active Substance: PREGABALIN
     Dosage: 75 MG ? 0 ? 100 MG
  3. BACLOFEN. [Concomitant]
     Active Substance: BACLOFEN
  4. OCREVUS [Suspect]
     Active Substance: OCRELIZUMAB
     Indication: RELAPSING-REMITTING MULTIPLE SCLEROSIS
     Dosage: SECOND INFUSION 04/APR/2018
     Route: 042
     Dates: start: 20180321
  5. OCREVUS [Suspect]
     Active Substance: OCRELIZUMAB
     Dosage: 06/JUN/2019
     Route: 042
     Dates: start: 20181109

REACTIONS (21)
  - Multiple sclerosis [Recovered/Resolved]
  - Haemorrhage [Recovered/Resolved]
  - Multiple sclerosis relapse [Recovered/Resolved]
  - Pyrexia [Recovered/Resolved]
  - Urinary tract infection [Recovered/Resolved]
  - Eczema [Recovering/Resolving]
  - Pain [Recovered/Resolved]
  - Arrhythmia [Recovered/Resolved]
  - Gastrointestinal infection [Recovered/Resolved]
  - Herpes zoster [Recovered/Resolved]
  - Bone contusion [Recovered/Resolved]
  - Infusion related reaction [Unknown]
  - Dizziness [Recovered/Resolved]
  - Oropharyngeal discomfort [Recovered/Resolved]
  - Uterine inflammation [Recovered/Resolved]
  - Oropharyngeal pain [Recovered/Resolved]
  - Fall [Unknown]
  - Dysphonia [Recovered/Resolved]
  - Cough [Recovered/Resolved]
  - Fatigue [Not Recovered/Not Resolved]
  - Increased upper airway secretion [Recovered/Resolved]

NARRATIVE: CASE EVENT DATE: 20180321
